FAERS Safety Report 16867949 (Version 1)
Quarter: 2019Q3

REPORT INFORMATION
  Report Type: Spontaneous
  Country: GB (occurrence: GB)
  Receive Date: 20190930
  Receipt Date: 20190930
  Transmission Date: 20191005
  Serious: Yes (Hospitalization, Other)
  Sender: FDA-Public Use
  Company Number: GB-MICRO LABS LIMITED-ML2019-02591

PATIENT
  Age: 79 Year
  Sex: Female

DRUGS (3)
  1. CELECOXIB. [Suspect]
     Active Substance: CELECOXIB
     Indication: MUSCULAR DYSTROPHY
     Route: 048
     Dates: start: 20100426
  2. SOLIFENACIN [Concomitant]
     Active Substance: SOLIFENACIN
  3. PARACETAMOL [Concomitant]
     Active Substance: ACETAMINOPHEN
     Dosage: UP TO FOUR TIMES A DAY

REACTIONS (2)
  - Hemiparesis [Not Recovered/Not Resolved]
  - Ischaemic stroke [Recovered/Resolved with Sequelae]

NARRATIVE: CASE EVENT DATE: 20190826
